FAERS Safety Report 10272555 (Version 1)
Quarter: 2014Q2

REPORT INFORMATION
  Report Type: Spontaneous
  Country: GB (occurrence: None)
  Receive Date: 20140630
  Receipt Date: 20140630
  Transmission Date: 20141212
  Serious: No
  Sender: FDA-Public Use
  Company Number: GB2014K2320SPO

PATIENT
  Age: 63 Year
  Sex: Female
  Weight: 73.7 kg

DRUGS (6)
  1. LANSOPRAZOLE GENERIC (LANSOPRAZOLE) UNKNOWN [Suspect]
     Indication: PRODUCT USED FOR UNKNOWN INDICATION
     Dates: start: 20140610
  2. CLOPIDOGREL [Concomitant]
  3. LEVOTHYROXINE [Concomitant]
  4. OMEPRAZOLE [Concomitant]
  5. PARACETAMOL [Concomitant]
  6. PERINDOPRIL ERBUMINE [Concomitant]

REACTIONS (1)
  - Drug-induced liver injury [None]
